FAERS Safety Report 22269558 (Version 1)
Quarter: 2023Q2

REPORT INFORMATION
  Report Type: Report from Study
  Country: US (occurrence: US)
  Receive Date: 20230501
  Receipt Date: 20230501
  Transmission Date: 20230722
  Serious: Yes (Other)
  Sender: FDA-Public Use
  Company Number: US-MYLANLABS-2023M1045423

PATIENT
  Age: 52 Year
  Sex: Female

DRUGS (1)
  1. LYRICA [Suspect]
     Active Substance: PREGABALIN
     Indication: Product used for unknown indication
     Dosage: 800 MILLIGRAM, QD
     Route: 065

REACTIONS (7)
  - Drug dependence [Unknown]
  - Influenza like illness [Unknown]
  - Sneezing [Unknown]
  - Feeling of despair [Unknown]
  - Nasopharyngitis [Unknown]
  - Heart rate increased [Unknown]
  - Off label use [Unknown]
